FAERS Safety Report 16300940 (Version 2)
Quarter: 2019Q4

REPORT INFORMATION
  Report Type: Spontaneous
  Country: US (occurrence: US)
  Receive Date: 20190510
  Receipt Date: 20191029
  Transmission Date: 20200122
  Serious: Yes (Other)
  Sender: FDA-Public Use
  Company Number: US-ASTRAZENECA-2019SE10934

PATIENT
  Sex: Male
  Weight: 88 kg

DRUGS (18)
  1. DOXAZOSIN [Concomitant]
     Active Substance: DOXAZOSIN MESYLATE
  2. NEXIUM 24HR [Suspect]
     Active Substance: ESOMEPRAZOLE MAGNESIUM
     Dosage: FOR VARIOUS DATES AND YEARS PRIOR TO AND/OR INCLUDING THE DATE OF PLAINTIFF^S INJURY OR INJURIES.
     Route: 048
  3. ATENOLOL. [Concomitant]
     Active Substance: ATENOLOL
  4. ZETIA [Concomitant]
     Active Substance: EZETIMIBE
  5. DICYCLOMINE [Concomitant]
     Active Substance: DICYCLOMINE HYDROCHLORIDE
  6. FLECAINIDE [Concomitant]
     Active Substance: FLECAINIDE
  7. NEXIUM [Suspect]
     Active Substance: ESOMEPRAZOLE MAGNESIUM
     Dosage: FOR VARIOUS DATES AND YEARS PRIOR TO AND/OR INCLUDING THE DATE OF PLAINTIFF^S INJURY OR INJURIES.
     Route: 048
  8. LIPITOR [Concomitant]
     Active Substance: ATORVASTATIN CALCIUM
  9. ATENOLOL. [Concomitant]
     Active Substance: ATENOLOL
  10. AMOXICILLIN. [Concomitant]
     Active Substance: AMOXICILLIN
  11. TRICOR [Concomitant]
     Active Substance: FENOFIBRATE
  12. NEXIUM [Suspect]
     Active Substance: ESOMEPRAZOLE MAGNESIUM
     Dosage: 40.0MG UNKNOWN
     Route: 048
  13. FENOFIBRATE. [Concomitant]
     Active Substance: FENOFIBRATE
  14. METOPROLOL SUCCINATE. [Concomitant]
     Active Substance: METOPROLOL SUCCINATE
  15. PEPCID [Concomitant]
     Active Substance: FAMOTIDINE
  16. FENOFIBRATE. [Concomitant]
     Active Substance: FENOFIBRATE
  17. TAMSULOSIN [Concomitant]
     Active Substance: TAMSULOSIN
  18. AVODART [Concomitant]
     Active Substance: DUTASTERIDE

REACTIONS (4)
  - Rebound acid hypersecretion [Unknown]
  - Renal failure [Unknown]
  - Acute kidney injury [Unknown]
  - Chronic kidney disease [Unknown]
